FAERS Safety Report 7954693-2 (Version None)
Quarter: 2011Q4

REPORT INFORMATION
  Report Type: 
  Country: None (occurrence: None)
  Receive Date: 20111202
  Receipt Date: 20111121
  Transmission Date: 20120403
  Serious: Yes (Hospitalization)
  Sender: FDA-Public Use
  Company Number: US-JNJFOC-20111013159

PATIENT
  Sex: Male
  Weight: 40.2 kg

DRUGS (2)
  1. INFLIXIMAB, RECOMBINANT [Suspect]
     Indication: CROHN'S DISEASE
     Route: 042
     Dates: start: 20060907, end: 20080411
  2. HUMIRA [Concomitant]
     Dates: start: 20081203

REACTIONS (1)
  - CROHN'S DISEASE [None]
